FAERS Safety Report 18750991 (Version 1)
Quarter: 2021Q1

REPORT INFORMATION
  Report Type: Spontaneous
  Country: US (occurrence: US)
  Receive Date: 20210118
  Receipt Date: 20210118
  Transmission Date: 20210419
  Serious: Yes (Other)
  Sender: FDA-Public Use
  Company Number: US-EMCURE PHARMACEUTICALS LTD-2021-EPL-000078

PATIENT
  Age: 68 Year
  Sex: Female

DRUGS (27)
  1. VALACYCLOVIR [Concomitant]
     Active Substance: VALACYCLOVIR HYDROCHLORIDE
     Indication: HERPES SIMPLEX
     Dosage: 500 MILLIGRAM, 1 TAB PO BID
     Route: 048
  2. TACROLIMUS. [Interacting]
     Active Substance: TACROLIMUS
     Dosage: 0.5 MILLIGRAM, BID
     Dates: start: 201811
  3. FLUCONAZOLE. [Interacting]
     Active Substance: FLUCONAZOLE
     Indication: CANDIDA OSTEOMYELITIS
     Dosage: 400 MILLIGRAM, 1 TAB PO DAILY
     Route: 048
     Dates: start: 2019
  4. BUDESONIDE/FORMOTEROL [Concomitant]
     Active Substance: BUDESONIDE\FORMOTEROL
     Indication: ASTHMA
     Dosage: INHALE TWICE DAILY
  5. FLUTICASONE. [Concomitant]
     Active Substance: FLUTICASONE
     Indication: RHINITIS ALLERGIC
     Dosage: 50 MCG, 2 SPRAYS DAILY
     Route: 045
  6. ALENDRONATE SODIUM. [Concomitant]
     Active Substance: ALENDRONATE SODIUM
     Indication: OSTEOPOROSIS
     Dosage: 70 MILLIGRAM, 1 TAB PO WEEKLY
     Route: 048
  7. AZITHROMYCIN ANHYDROUS. [Concomitant]
     Active Substance: AZITHROMYCIN ANHYDROUS
     Indication: INFECTION PROPHYLAXIS
     Dosage: 250 MILLIGRAM, 1 TAB PO THREE TIMES WEEKLY
     Route: 048
  8. SULFAMETHOXAZOLE?TRIMETHOPRIM [Concomitant]
     Active Substance: SULFAMETHOXAZOLE\TRIMETHOPRIM
     Indication: INFECTION PROPHYLAXIS
     Dosage: 1 TAB PO THREE TIMES WEEKLY
     Route: 048
  9. ACETAMINOPHEN. [Concomitant]
     Active Substance: ACETAMINOPHEN
     Indication: PAIN
     Dosage: 2 TABS PO Q6H PRN
     Route: 048
  10. LIDOCAINE. [Concomitant]
     Active Substance: LIDOCAINE
     Indication: PAIN
     Dosage: 1 PATCH ON SKIN DAILY; DISCARD AFTER 12 HOURS
  11. FIBER GUMMIES [Concomitant]
     Active Substance: DIETARY SUPPLEMENT
     Indication: SUPPLEMENTATION THERAPY
     Dosage: 2.5 G FIER + 500 IU VIT D, 3 GUMMIES PO DAILY
     Route: 048
  12. FENTANYL. [Concomitant]
     Active Substance: FENTANYL
     Indication: PAIN
     Dosage: 12 MCG/HOUR, 1 PATCH ON SKIN EVERY 72 HOURS
  13. MYCOPHENOLATE MOFETIL. [Concomitant]
     Active Substance: MYCOPHENOLATE MOFETIL
     Indication: IMMUNOSUPPRESSION
     Dosage: 250 MILLIGRAM, 1 CAPSULE PO BID
     Route: 048
     Dates: start: 201811
  14. SODIUM?POTASSIUM PHOSPHATES [Concomitant]
     Indication: HYPOPHOSPHATAEMIA
     Dosage: 1 PACKET PO QID (WITH MEALS AND AT BEDTIME)
     Route: 048
  15. FAMOTIDINE. [Concomitant]
     Active Substance: FAMOTIDINE
     Indication: GASTROOESOPHAGEAL REFLUX DISEASE
     Dosage: 20 MILLIGRAM, 1 TAB PO BID
     Route: 048
  16. IPRATROPIUM BROMIDE. [Concomitant]
     Active Substance: IPRATROPIUM BROMIDE
     Indication: RHINITIS
     Dosage: 17 MCG, 2 SPRAYS INTO EACH NOSTRIL BID PRN
  17. CHOLECALCIFEROL [Concomitant]
     Active Substance: CHOLECALCIFEROL
     Indication: SUPPLEMENTATION THERAPY
     Dosage: 2000 IU, 1 TAB PO DAILY
     Route: 048
  18. GUAIFENESIN. [Concomitant]
     Active Substance: GUAIFENESIN
     Indication: COUGH
     Dosage: 600 MILLIGRAM, 1 TAB PO BID PRN
     Route: 048
  19. DILTIAZEM HYDROCHLORIDE. [Interacting]
     Active Substance: DILTIAZEM HYDROCHLORIDE
     Indication: HYPERTENSION
     Dosage: 30 MILLIGRAM, EVERY 6 HOURS, SHORT?ACTING FORMULATION
     Dates: start: 201901
  20. LANSOPRAZOLE. [Concomitant]
     Active Substance: LANSOPRAZOLE
     Indication: GASTROOESOPHAGEAL REFLUX DISEASE
     Dosage: 15 MILLIGRAM, 1 TAB PO QAM BEFORE BREAKFAST
  21. CASPOFUNGIN [Concomitant]
     Active Substance: CASPOFUNGIN
     Indication: CANDIDA OSTEOMYELITIS
     Route: 042
  22. TACROLIMUS. [Suspect]
     Active Substance: TACROLIMUS
     Indication: IMMUNOSUPPRESSION
     Dosage: UNK
  23. DILTIAZEM HYDROCHLORIDE. [Interacting]
     Active Substance: DILTIAZEM HYDROCHLORIDE
     Indication: TACHYCARDIA
     Dosage: 300 MILLIGRAM, 1 CAP PO DAILY, LONG ACTING FORMULATION
     Route: 048
     Dates: start: 2019
  24. KETOCONAZOLE. [Concomitant]
     Active Substance: KETOCONAZOLE
     Indication: FUNGAL INFECTION
     Dosage: APPLY UNDER BREASTS TO INFECTED SITE QOD
  25. PREDNISONE. [Concomitant]
     Active Substance: PREDNISONE
     Indication: IMMUNOSUPPRESSION
     Dosage: 10 MILLIGRAM, 1 TAB PO DAILY
     Route: 048
     Dates: start: 201811
  26. CALCIUM ADULT GUMMIES [Concomitant]
     Indication: SUPPLEMENTATION THERAPY
     Dosage: 2 GUMMIES PO DAILY (500 MG CA + 700 IU VIT D)
     Route: 048
  27. MAGNESIUM GLYCINATE [Concomitant]
     Active Substance: MAGNESIUM GLYCINATE
     Indication: HYPOMAGNESAEMIA
     Dosage: 650 MILLIGRAM, 3 TABS PO QAN
     Route: 048

REACTIONS (7)
  - Drug interaction [Unknown]
  - Drug level increased [Unknown]
  - Gait disturbance [Recovering/Resolving]
  - Bradykinesia [Unknown]
  - Asthenia [Unknown]
  - Tremor [Unknown]
  - Product administration error [Unknown]

NARRATIVE: CASE EVENT DATE: 2019
